FAERS Safety Report 12208031 (Version 1)
Quarter: 2016Q1

REPORT INFORMATION
  Report Type: Report from Study
  Country: DE (occurrence: DE)
  Receive Date: 20160324
  Receipt Date: 20160324
  Transmission Date: 20160526
  Serious: Yes (Other)
  Sender: FDA-Public Use
  Company Number: DE-TEVA-584868GER

PATIENT
  Sex: Male

DRUGS (1)
  1. COPAXONE [Suspect]
     Active Substance: GLATIRAMER ACETATE
     Indication: MULTIPLE SCLEROSIS
     Dosage: 20 MILLIGRAM DAILY;
     Dates: start: 20110818

REACTIONS (2)
  - Injection site necrosis [Recovered/Resolved with Sequelae]
  - Embolia cutis medicamentosa [Recovered/Resolved with Sequelae]

NARRATIVE: CASE EVENT DATE: 2015
